FAERS Safety Report 6282542-X (Version None)
Quarter: 2009Q3

REPORT INFORMATION
  Report Type: 
  Country: None (occurrence: None)
  Receive Date: 20090724
  Receipt Date: 20090714
  Transmission Date: 20100115
  Serious: Yes (Hospitalization)
  Sender: FDA-Public Use
  Company Number: US-WATSON-2009-04307

PATIENT
  Sex: Female

DRUGS (8)
  1. PROPAFENONE (WATSON LABORATORIES) [Suspect]
     Indication: ARRHYTHMIA
     Dosage: 225 MG, BID, THE NEXT DAY TAKES 225 MG DAILY
     Route: 048
     Dates: start: 20090601
  2. PROPAFENONE (WATSON LABORATORIES) [Suspect]
     Dosage: 225 MG, BID, THE NEXT DAY TAKES 225 MG DAILY
     Route: 048
     Dates: start: 20090201, end: 20090531
  3. VERAPAMIL [Suspect]
     Indication: ARRHYTHMIA
     Dosage: 20 MG (1/4 TABLET) , QPM
     Route: 048
     Dates: start: 20050101, end: 20090401
  4. VERAPAMIL [Suspect]
     Indication: ATRIAL FIBRILLATION
     Dosage: 1/2 OR 1 TAB OF 80 MG TAB
     Route: 048
     Dates: start: 20020101, end: 20090401
  5. ENALAPRIL                          /00574902/ [Concomitant]
     Indication: DRUG USE FOR UNKNOWN INDICATION
     Dosage: 10 MG, BID
     Route: 048
  6. DIAZEPAM [Concomitant]
     Indication: DRUG USE FOR UNKNOWN INDICATION
     Dosage: 5 MG, 1/2 TABLET QHS, RN
     Route: 048
  7. COUMADIN [Concomitant]
     Indication: DRUG USE FOR UNKNOWN INDICATION
     Dosage: 2 MG, DAILY
     Route: 048
  8. VITAMIN A [Concomitant]
     Indication: SUPPLEMENTATION THERAPY
     Dosage: 1000 UNITS DAILY
     Route: 048

REACTIONS (7)
  - BRADYCARDIA [None]
  - CHEST PAIN [None]
  - DRUG INEFFECTIVE [None]
  - HEART RATE DECREASED [None]
  - HERPES ZOSTER [None]
  - POST HERPETIC NEURALGIA [None]
  - RASH MACULO-PAPULAR [None]
